FAERS Safety Report 13928312 (Version 2)
Quarter: 2017Q3

REPORT INFORMATION
  Report Type: Spontaneous
  Country: JP (occurrence: JP)
  Receive Date: 20170901
  Receipt Date: 20170911
  Transmission Date: 20171127
  Serious: Yes (Hospitalization)
  Sender: FDA-Public Use
  Company Number: JP-JNJFOC-20170828448

PATIENT
  Age: 67 Year
  Sex: Female
  Weight: 62 kg

DRUGS (8)
  1. INSULIN [Concomitant]
     Active Substance: INSULIN NOS
     Route: 065
  2. TELMISARTAN. [Suspect]
     Active Substance: TELMISARTAN
     Indication: HYPERTENSION
     Route: 048
  3. METFORMIN HYDROCHLORIDE. [Concomitant]
     Active Substance: METFORMIN HYDROCHLORIDE
     Indication: DIABETES MELLITUS
     Route: 048
  4. MICAMLO [Concomitant]
     Active Substance: AMLODIPINE BESYLATE\TELMISARTAN
     Indication: HYPERTENSION
     Route: 048
     Dates: start: 20170816
  5. EUCREAS [Concomitant]
     Active Substance: METFORMIN HYDROCHLORIDE\VILDAGLIPTIN
     Route: 048
     Dates: start: 20170816
  6. METFORMIN HYDROCHLORIDE. [Concomitant]
     Active Substance: METFORMIN HYDROCHLORIDE
     Indication: DIABETES MELLITUS
     Route: 048
     Dates: start: 20170720, end: 20170811
  7. CANAGLU [Suspect]
     Active Substance: CANAGLIFLOZIN
     Indication: DIABETES MELLITUS
     Route: 048
     Dates: start: 20170720, end: 20170811
  8. TELMISARTAN. [Suspect]
     Active Substance: TELMISARTAN
     Indication: HYPERTENSION
     Route: 048
     Dates: start: 20170720, end: 20170811

REACTIONS (2)
  - Photosensitivity reaction [Recovered/Resolved]
  - Blood glucose abnormal [Unknown]

NARRATIVE: CASE EVENT DATE: 20170810
